FAERS Safety Report 4956832-4 (Version None)
Quarter: 2006Q1

REPORT INFORMATION
  Report Type: 
  Country: None (occurrence: None)
  Receive Date: 20060323
  Receipt Date: 20060314
  Transmission Date: 20060701
  Serious: Yes (Hospitalization)
  Sender: FDA-Public Use
  Company Number: EM2006-0102

PATIENT
  Age: 7 Year
  Sex: Female
  Weight: 23.6 kg

DRUGS (10)
  1. TOBI [Suspect]
     Indication: PSEUDOMONAS INFECTION
     Dosage: 300 MG, BID, INHALATION
     Route: 055
     Dates: start: 20051229, end: 20060126
  2. CIPROFLAXACIN [Suspect]
     Indication: PSEUDOMONAS INFECTION
     Dosage: 375 MG, BID, ORAL
     Route: 048
     Dates: start: 20051229, end: 20060112
  3. ADVAIR DISKUS (FLUTICASONE PROPIONATE, SALMETEROL XINAFOATE) [Concomitant]
  4. RHINOCORT AQUA (BUDESONIDE) [Concomitant]
  5. ULTRASE (PANCRELIPASE) [Concomitant]
  6. PEPTOMEN [Concomitant]
  7. SKANDI [Concomitant]
  8. ALBUTEROL [Concomitant]
  9. ADEKS (VITAMINS NOS, ZINC) [Concomitant]
  10. VITAMIN E [Concomitant]

REACTIONS (6)
  - CONDITION AGGRAVATED [None]
  - COUGH [None]
  - CYSTIC FIBROSIS [None]
  - FORCED EXPIRATORY VOLUME DECREASED [None]
  - VITAL CAPACITY DECREASED [None]
  - WEIGHT DECREASED [None]
